FAERS Safety Report 16706303 (Version 4)
Quarter: 2020Q2

REPORT INFORMATION
  Report Type: Report from Study
  Country: DE (occurrence: DE)
  Receive Date: 20190815
  Receipt Date: 20200421
  Transmission Date: 20200713
  Serious: Yes (Death, Life-Threatening, Hospitalization, Other)
  Sender: FDA-Public Use
  Company Number: DE-JNJFOC-20190340908

PATIENT
  Age: 74 Year
  Sex: Male
  Weight: 89 kg

DRUGS (95)
  1. CAELYX [Suspect]
     Active Substance: DOXORUBICIN HYDROCHLORIDE
     Route: 041
     Dates: start: 20190314, end: 20190314
  2. CYCLOPHOSPHAMIDE. [Suspect]
     Active Substance: CYCLOPHOSPHAMIDE
     Route: 041
     Dates: start: 20190410, end: 20190410
  3. PREDNISONE. [Suspect]
     Active Substance: PREDNISONE
     Route: 048
     Dates: start: 20190226, end: 20190302
  4. PREDNISONE. [Suspect]
     Active Substance: PREDNISONE
     Route: 048
     Dates: start: 20190314, end: 20190318
  5. RANITIDIN [Concomitant]
     Active Substance: RANITIDINE HYDROCHLORIDE
     Route: 042
     Dates: start: 20190313, end: 20190314
  6. DEXAMETHASONE. [Concomitant]
     Active Substance: DEXAMETHASONE
     Route: 048
     Dates: start: 20190425, end: 20190425
  7. ERYTHROZYTEN KONZENTRAT [Concomitant]
     Route: 042
     Dates: start: 20190312, end: 20190312
  8. ERYTHROZYTEN KONZENTRAT [Concomitant]
     Route: 042
     Dates: start: 20190425, end: 20190425
  9. SIMVASTATIN. [Concomitant]
     Active Substance: SIMVASTATIN
     Indication: PRODUCT USED FOR UNKNOWN INDICATION
     Route: 048
     Dates: start: 20190211
  10. CALCITONIN [Concomitant]
     Active Substance: CALCITONIN
     Indication: HYPERCALCAEMIA
     Route: 042
     Dates: start: 20190211
  11. CAELYX [Suspect]
     Active Substance: DOXORUBICIN HYDROCHLORIDE
     Route: 041
     Dates: start: 20190425, end: 20190425
  12. CAELYX [Suspect]
     Active Substance: DOXORUBICIN HYDROCHLORIDE
     Route: 041
     Dates: start: 20190410, end: 20190410
  13. TORASEMID [Concomitant]
     Active Substance: TORSEMIDE
     Indication: ATRIAL FIBRILLATION
  14. RANITIDIN [Concomitant]
     Active Substance: RANITIDINE HYDROCHLORIDE
     Route: 042
     Dates: start: 20190408, end: 20190410
  15. DEXAMETHASONE. [Concomitant]
     Active Substance: DEXAMETHASONE
     Indication: GENERAL PHYSICAL HEALTH DETERIORATION
     Route: 048
     Dates: start: 20190226, end: 20190226
  16. MESNA. [Concomitant]
     Active Substance: MESNA
     Route: 042
     Dates: start: 20190313, end: 20190313
  17. ATORVASTATIN [Concomitant]
     Active Substance: ATORVASTATIN
     Indication: ATRIAL FIBRILLATION
  18. ZOMETA [Concomitant]
     Active Substance: ZOLEDRONIC ACID
     Route: 042
     Dates: start: 20190327, end: 20190327
  19. ERYTHROZYTEN KONZENTRAT [Concomitant]
     Route: 042
     Dates: start: 20190507, end: 20190507
  20. CYCLOPHOSPHAMIDE. [Suspect]
     Active Substance: CYCLOPHOSPHAMIDE
     Route: 041
     Dates: start: 20190226, end: 20190226
  21. CYCLOPHOSPHAMIDE. [Suspect]
     Active Substance: CYCLOPHOSPHAMIDE
     Route: 041
     Dates: start: 20190314, end: 20190314
  22. RITUXIMAB. [Suspect]
     Active Substance: RITUXIMAB
     Indication: DIFFUSE LARGE B-CELL LYMPHOMA
     Route: 041
     Dates: start: 20190225, end: 20190225
  23. RITUXIMAB. [Suspect]
     Active Substance: RITUXIMAB
     Route: 041
     Dates: start: 20190622, end: 20190622
  24. RANITIDIN [Concomitant]
     Active Substance: RANITIDINE HYDROCHLORIDE
     Route: 042
     Dates: start: 20190225, end: 20190226
  25. DEXAMETHASONE. [Concomitant]
     Active Substance: DEXAMETHASONE
     Route: 048
     Dates: start: 20190410, end: 20190410
  26. MESNA. [Concomitant]
     Active Substance: MESNA
     Route: 042
     Dates: start: 20190410, end: 20190410
  27. DIMETINDENE [Concomitant]
     Active Substance: DIMETHINDENE
     Route: 042
     Dates: start: 20190313, end: 20190313
  28. DIMETINDENE [Concomitant]
     Active Substance: DIMETHINDENE
     Route: 042
     Dates: start: 20190424, end: 20190424
  29. PANTOZOL [Concomitant]
     Active Substance: PANTOPRAZOLE SODIUM
     Indication: GENERAL PHYSICAL HEALTH DETERIORATION
  30. LONQUEX [Concomitant]
     Active Substance: LIPEGFILGRASTIM
     Indication: GENERAL PHYSICAL HEALTH DETERIORATION
     Route: 065
     Dates: start: 20190225, end: 20190225
  31. ERYTHROZYTEN KONZENTRAT [Concomitant]
     Route: 042
     Dates: start: 20190302, end: 20190302
  32. LORAZEPAM. [Concomitant]
     Active Substance: LORAZEPAM
     Indication: PROPHYLAXIS
     Route: 048
     Dates: start: 20190211
  33. CYCLOPHOSPHAMIDE. [Suspect]
     Active Substance: CYCLOPHOSPHAMIDE
     Indication: DIFFUSE LARGE B-CELL LYMPHOMA
     Dosage: START TIME 15:00 TO STOP TIME 16:00
     Route: 041
     Dates: start: 20190212, end: 20190212
  34. RITUXIMAB. [Suspect]
     Active Substance: RITUXIMAB
     Route: 041
     Dates: start: 20190313, end: 20190313
  35. VINCRISTINE [Suspect]
     Active Substance: VINCRISTINE
     Indication: DIFFUSE LARGE B-CELL LYMPHOMA
     Dosage: START TIME: 04:30 TO STOP TIME: 04:35
     Route: 041
     Dates: start: 20190212, end: 20190212
  36. VINCRISTINE [Suspect]
     Active Substance: VINCRISTINE
     Route: 041
     Dates: start: 20190410, end: 20190410
  37. PREDNISONE. [Suspect]
     Active Substance: PREDNISONE
     Route: 048
     Dates: start: 20190425, end: 20190429
  38. DEXAMETHASONE. [Concomitant]
     Active Substance: DEXAMETHASONE
     Route: 048
     Dates: start: 20190313, end: 20190313
  39. MESNA. [Concomitant]
     Active Substance: MESNA
     Route: 042
     Dates: start: 20190425, end: 20190425
  40. MIRTAZAPIN [Concomitant]
     Active Substance: MIRTAZAPINE
     Indication: PROPHYLAXIS
     Route: 048
     Dates: start: 20190201
  41. DIMETINDENE [Concomitant]
     Active Substance: DIMETHINDENE
     Route: 042
     Dates: start: 20190408, end: 20190408
  42. ALLOPURINOL. [Concomitant]
     Active Substance: ALLOPURINOL
     Indication: ARRHYTHMIA
  43. ERYTHROZYTEN KONZENTRAT [Concomitant]
     Indication: PANCYTOPENIA
     Route: 042
     Dates: start: 20190308
  44. LORAZEPAM. [Concomitant]
     Active Substance: LORAZEPAM
     Indication: GENERAL PHYSICAL HEALTH DETERIORATION
  45. COTRIM FORTE [Concomitant]
     Active Substance: SULFAMETHOXAZOLE\TRIMETHOPRIM
     Indication: PRODUCT USED FOR UNKNOWN INDICATION
     Dates: start: 20180101
  46. CAELYX [Suspect]
     Active Substance: DOXORUBICIN HYDROCHLORIDE
     Route: 041
     Dates: start: 20190226, end: 20190226
  47. RITUXIMAB. [Suspect]
     Active Substance: RITUXIMAB
     Route: 041
     Dates: start: 20190211, end: 20190211
  48. VINCRISTINE [Suspect]
     Active Substance: VINCRISTINE
     Route: 041
     Dates: start: 20190314, end: 20190314
  49. RANITIDIN [Concomitant]
     Active Substance: RANITIDINE HYDROCHLORIDE
     Route: 042
     Dates: start: 20190424, end: 20190425
  50. MESNA. [Concomitant]
     Active Substance: MESNA
     Indication: GENERAL PHYSICAL HEALTH DETERIORATION
     Route: 042
     Dates: start: 20190212, end: 20190212
  51. PARACETAMOL [Concomitant]
     Active Substance: ACETAMINOPHEN
     Indication: PROPHYLAXIS
     Route: 048
     Dates: start: 20190313, end: 20190313
  52. PARACETAMOL [Concomitant]
     Active Substance: ACETAMINOPHEN
     Route: 042
     Dates: start: 20190408, end: 20190408
  53. COTRIM FORTE [Concomitant]
     Active Substance: SULFAMETHOXAZOLE\TRIMETHOPRIM
     Indication: GENERAL PHYSICAL HEALTH DETERIORATION
     Route: 048
     Dates: start: 20180101
  54. PALLADON [Concomitant]
     Active Substance: HYDROMORPHONE
     Indication: GENERAL PHYSICAL HEALTH DETERIORATION
  55. ATORVASTATIN [Concomitant]
     Active Substance: ATORVASTATIN
     Indication: CARDIAC DISORDER
     Route: 048
     Dates: start: 20180101
  56. CANDESARTAN. [Concomitant]
     Active Substance: CANDESARTAN
     Indication: HYPERTENSION
     Route: 048
     Dates: start: 20180101
  57. NOVALGIN [Concomitant]
     Indication: PROPHYLAXIS
     Route: 048
     Dates: start: 20180101
  58. LONQUEX [Concomitant]
     Active Substance: LIPEGFILGRASTIM
     Indication: PROPHYLAXIS
     Route: 058
     Dates: start: 20190212, end: 20190212
  59. ZOMETA [Concomitant]
     Active Substance: ZOLEDRONIC ACID
     Indication: HYPERCALCAEMIA
     Route: 042
     Dates: start: 20190426, end: 20190426
  60. RITUXIMAB. [Suspect]
     Active Substance: RITUXIMAB
     Route: 041
     Dates: start: 20190424, end: 20190424
  61. VINCRISTINE [Suspect]
     Active Substance: VINCRISTINE
     Route: 041
     Dates: start: 20190425, end: 20190425
  62. TORASEMID [Concomitant]
     Active Substance: TORSEMIDE
     Indication: CARDIAC DISORDER
     Route: 048
     Dates: start: 20180101
  63. RANITIDIN [Concomitant]
     Active Substance: RANITIDINE HYDROCHLORIDE
     Route: 042
     Dates: start: 20190622, end: 20190622
  64. MESNA. [Concomitant]
     Active Substance: MESNA
     Indication: PROPHYLAXIS
     Route: 042
     Dates: start: 20190226, end: 20190226
  65. MIRTAZAPIN [Concomitant]
     Active Substance: MIRTAZAPINE
     Indication: GENERAL PHYSICAL HEALTH DETERIORATION
  66. ACETYLSALICYLIC ACID [Concomitant]
     Active Substance: ASPIRIN
     Indication: CEREBROVASCULAR ACCIDENT
     Route: 048
     Dates: start: 20180101
  67. DIMETINDENE [Concomitant]
     Active Substance: DIMETHINDENE
     Indication: PROPHYLAXIS
     Route: 042
     Dates: start: 20190225, end: 20190225
  68. DIMETINDENE [Concomitant]
     Active Substance: DIMETHINDENE
     Route: 042
     Dates: start: 20190622, end: 20190622
  69. ALLOPURINOL. [Concomitant]
     Active Substance: ALLOPURINOL
     Indication: CARDIAC DISORDER
     Route: 048
     Dates: start: 20180101
  70. LONQUEX [Concomitant]
     Active Substance: LIPEGFILGRASTIM
     Route: 065
     Dates: start: 20190308, end: 20190308
  71. LONQUEX [Concomitant]
     Active Substance: LIPEGFILGRASTIM
     Route: 042
     Dates: start: 20190424, end: 20190424
  72. ASPIRIN. [Concomitant]
     Active Substance: ASPIRIN
     Indication: CEREBROVASCULAR ACCIDENT
     Route: 048
     Dates: start: 20180101
  73. CAELYX [Suspect]
     Active Substance: DOXORUBICIN HYDROCHLORIDE
     Indication: DIFFUSE LARGE B-CELL LYMPHOMA
     Route: 041
     Dates: start: 20190212, end: 20190212
  74. PREDNISONE. [Suspect]
     Active Substance: PREDNISONE
     Route: 048
     Dates: start: 20190410, end: 20190414
  75. RANITIDIN [Concomitant]
     Active Substance: RANITIDINE HYDROCHLORIDE
     Indication: PROPHYLAXIS
     Route: 042
     Dates: start: 20190212, end: 20190212
  76. GRANISETRON [Concomitant]
     Active Substance: GRANISETRON
     Indication: PROPHYLAXIS
     Route: 048
     Dates: start: 20190212, end: 20190212
  77. GRANISETRON [Concomitant]
     Active Substance: GRANISETRON
     Indication: GENERAL PHYSICAL HEALTH DETERIORATION
     Route: 048
     Dates: start: 20190226, end: 20190226
  78. GRANISETRON [Concomitant]
     Active Substance: GRANISETRON
     Route: 048
     Dates: start: 20190425, end: 20190425
  79. DEXAMETHASONE. [Concomitant]
     Active Substance: DEXAMETHASONE
     Indication: PROPHYLAXIS
     Route: 048
     Dates: start: 20190211, end: 20190211
  80. PANTOZOL [Concomitant]
     Active Substance: PANTOPRAZOLE SODIUM
     Indication: PROPHYLAXIS
     Route: 048
     Dates: start: 20180101
  81. NOVALGIN [Concomitant]
     Indication: GENERAL PHYSICAL HEALTH DETERIORATION
  82. ZOMETA [Concomitant]
     Active Substance: ZOLEDRONIC ACID
     Indication: HYPERKALAEMIA
     Route: 042
     Dates: start: 20190205
  83. ZOMETA [Concomitant]
     Active Substance: ZOLEDRONIC ACID
     Route: 042
     Dates: start: 20190211
  84. FRESUBIN                           /07459901/ [Concomitant]
     Active Substance: CARBOHYDRATES\FATTY ACIDS\MINERALS\PROTEIN\VITAMINS
     Indication: GENERAL PHYSICAL HEALTH DETERIORATION
     Dosage: DRINK
     Route: 048
     Dates: start: 20180101
  85. L-THYROXIN [Concomitant]
     Active Substance: LEVOTHYROXINE SODIUM
     Indication: GOITRE
     Dates: start: 20180101
  86. CYCLOPHOSPHAMIDE. [Suspect]
     Active Substance: CYCLOPHOSPHAMIDE
     Route: 041
     Dates: start: 20190425, end: 20190425
  87. RITUXIMAB. [Suspect]
     Active Substance: RITUXIMAB
     Route: 041
     Dates: start: 20190408, end: 20190408
  88. VINCRISTINE [Suspect]
     Active Substance: VINCRISTINE
     Route: 041
     Dates: start: 20190226, end: 20190226
  89. PREDNISONE. [Suspect]
     Active Substance: PREDNISONE
     Indication: DIFFUSE LARGE B-CELL LYMPHOMA
     Route: 048
     Dates: start: 20190212, end: 20190216
  90. L-THYROXIN [Concomitant]
     Active Substance: LEVOTHYROXINE SODIUM
     Indication: GOITRE
     Dosage: 50 OT
     Route: 048
     Dates: start: 20180101
  91. GRANISETRON [Concomitant]
     Active Substance: GRANISETRON
     Route: 048
     Dates: start: 20190313, end: 20190313
  92. PARACETAMOL [Concomitant]
     Active Substance: ACETAMINOPHEN
     Route: 048
     Dates: start: 20190622, end: 20190622
  93. PREGABALIN. [Concomitant]
     Active Substance: PREGABALIN
     Indication: CEREBROVASCULAR ACCIDENT
     Route: 048
     Dates: start: 20180101
  94. PALLADON [Concomitant]
     Active Substance: HYDROMORPHONE
     Indication: PROPHYLAXIS
     Route: 048
     Dates: start: 20180101
  95. LONQUEX [Concomitant]
     Active Substance: LIPEGFILGRASTIM
     Route: 065
     Dates: start: 20190408, end: 20190408

REACTIONS (20)
  - Diffuse large B-cell lymphoma [Fatal]
  - Metastases to bone [Unknown]
  - Blood lactate dehydrogenase increased [Unknown]
  - Pneumonia [Fatal]
  - Metastases to soft tissue [Unknown]
  - Metastases to pelvis [Unknown]
  - Thrombosis [Not Recovered/Not Resolved]
  - Oedema peripheral [Not Recovered/Not Resolved]
  - Acetabulum fracture [Not Recovered/Not Resolved]
  - Malignant neoplasm progression [Fatal]
  - Thoracic vertebral fracture [Not Recovered/Not Resolved]
  - Scapula fracture [Not Recovered/Not Resolved]
  - Off label use [Unknown]
  - Product use in unapproved indication [Unknown]
  - Pancytopenia [Recovered/Resolved]
  - Thrombocytopenia [Not Recovered/Not Resolved]
  - Metastases to spine [Unknown]
  - Muscular weakness [Not Recovered/Not Resolved]
  - Infection [Not Recovered/Not Resolved]
  - Lymphadenopathy [Unknown]

NARRATIVE: CASE EVENT DATE: 20190225
